FAERS Safety Report 4742110-5 (Version None)
Quarter: 2005Q3

REPORT INFORMATION
  Report Type: 
  Country: None (occurrence: None)
  Receive Date: 20050808
  Receipt Date: 20050728
  Transmission Date: 20060218
  Serious: Yes (Hospitalization)
  Sender: FDA-Public Use
  Company Number: B0387470A

PATIENT
  Age: 32 Year
  Sex: Male

DRUGS (4)
  1. LITHIUM CARBONATE [Suspect]
     Dosage: 400 MG
  2. CLONAZEPAM [Concomitant]
  3. RISPERIDONE [Concomitant]
  4. LAMOTRIGINE [Concomitant]

REACTIONS (5)
  - BLOOD PRESSURE INCREASED [None]
  - HAEMODIALYSIS [None]
  - OVERDOSE [None]
  - SUICIDE ATTEMPT [None]
  - THERAPEUTIC AGENT TOXICITY [None]
